FAERS Safety Report 14430622 (Version 1)
Quarter: 2018Q1

REPORT INFORMATION
  Report Type: Report from Study
  Country: US (occurrence: US)
  Receive Date: 20180124
  Receipt Date: 20180124
  Transmission Date: 20180509
  Serious: Yes (Other)
  Sender: FDA-Public Use
  Company Number: US-KADMON PHARMACEUTICALS, LLC-KAD201512-004392

PATIENT
  Age: 50 Year
  Sex: Male

DRUGS (4)
  1. RIBAVIRIN. [Suspect]
     Active Substance: RIBAVIRIN
     Indication: HEPATITIS C
     Dosage: TABLET
     Route: 048
     Dates: start: 20150813, end: 20150907
  2. VIEKIRA PAK [Suspect]
     Active Substance: DASABUVIR\OMBITASVIR\PARITAPREVIR\RITONAVIR
     Dosage: TABLET
     Route: 048
     Dates: start: 20150828, end: 20151105
  3. RIBAVIRIN. [Suspect]
     Active Substance: RIBAVIRIN
     Dosage: TABLET
     Route: 048
     Dates: start: 20150908, end: 20151105
  4. VIEKIRA PAK [Suspect]
     Active Substance: DASABUVIR\OMBITASVIR\PARITAPREVIR\RITONAVIR
     Indication: HEPATITIS C
     Dosage: TABLET
     Route: 048
     Dates: start: 20150813, end: 20150820

REACTIONS (27)
  - Asthenia [Unknown]
  - Rhinorrhoea [Unknown]
  - Decreased appetite [Unknown]
  - Anaemia [Unknown]
  - Diarrhoea [Unknown]
  - Urinary tract infection [Unknown]
  - Nausea [Unknown]
  - Fungal infection [Unknown]
  - Pollakiuria [Unknown]
  - Vulvovaginal mycotic infection [Unknown]
  - Dizziness [Unknown]
  - Fall [Unknown]
  - Dehydration [Unknown]
  - Malaise [Unknown]
  - Faeces discoloured [Unknown]
  - Back pain [Unknown]
  - Cough [Unknown]
  - Influenza like illness [Unknown]
  - Gastrointestinal infection [Unknown]
  - Headache [Unknown]
  - Haematemesis [Unknown]
  - Fatigue [Unknown]
  - Gastrointestinal haemorrhage [Unknown]
  - Joint injury [Unknown]
  - Leukopenia [Unknown]
  - Contusion [Unknown]
  - Dysuria [Unknown]

NARRATIVE: CASE EVENT DATE: 20150820
